FAERS Safety Report 4947221-7 (Version None)
Quarter: 2006Q1

REPORT INFORMATION
  Report Type: 
  Country: None (occurrence: None)
  Receive Date: 20060317
  Receipt Date: 20060310
  Transmission Date: 20060701
  Serious: Yes (Other)
  Sender: FDA-Public Use
  Company Number: US-SANOFI-SYNTHELABO-A03200601316

PATIENT
  Sex: Female

DRUGS (1)
  1. AMBIEN [Suspect]
     Indication: INSOMNIA
     Route: 048
     Dates: start: 20050501

REACTIONS (5)
  - AMNESIA [None]
  - CONTUSION [None]
  - INJURY [None]
  - ROAD TRAFFIC ACCIDENT [None]
  - SLEEP WALKING [None]
